FAERS Safety Report 20433551 (Version 1)
Quarter: 2022Q1

REPORT INFORMATION
  Report Type: Spontaneous
  Country: NL (occurrence: NL)
  Receive Date: 20220205
  Receipt Date: 20220205
  Transmission Date: 20220424
  Serious: Yes (Other)
  Sender: FDA-Public Use
  Company Number: None

PATIENT
  Age: 83 Year
  Sex: Female
  Weight: 60 kg

DRUGS (3)
  1. METHOTREXATE [Suspect]
     Active Substance: METHOTREXATE
     Indication: Rheumatoid arthritis
     Dosage: 1 X PER DAY 1 PIECE
     Dates: start: 201301, end: 20211206
  2. IBUPROFEN [Concomitant]
     Active Substance: IBUPROFEN
     Dosage: TABLET, 600 MG (MILLIGRAM)
  3. FOLIC ACID [Concomitant]
     Active Substance: FOLIC ACID
     Dosage: TABLET, 5 MG (MILLIGRAM)

REACTIONS (1)
  - Follicular lymphoma [Unknown]

NARRATIVE: CASE EVENT DATE: 20211004
